FAERS Safety Report 10811706 (Version 1)
Quarter: 2015Q1

REPORT INFORMATION
  Report Type: Spontaneous
  Country: US (occurrence: None)
  Receive Date: 20150213
  Receipt Date: 20150213
  Transmission Date: 20150721
  Serious: Yes (Other)
  Sender: FDA-Public Use
  Company Number: None

PATIENT
  Age: 19 Year
  Sex: Female
  Weight: 54.43 kg

DRUGS (1)
  1. TAMIFLU [Suspect]
     Active Substance: OSELTAMIVIR PHOSPHATE
     Indication: DRUG THERAPY
     Dosage: TWICE DAILY, TAKEN BY MOUTH
     Route: 048
     Dates: start: 20150112, end: 20150114

REACTIONS (7)
  - Lip blister [None]
  - Blister [None]
  - Tongue blistering [None]
  - Condition aggravated [None]
  - Oral mucosal blistering [None]
  - Oropharyngeal blistering [None]
  - Hypersensitivity [None]

NARRATIVE: CASE EVENT DATE: 20150111
